FAERS Safety Report 9670996 (Version 1)
Quarter: 2013Q4

REPORT INFORMATION
  Report Type: Spontaneous
  Country: US (occurrence: US)
  Receive Date: 20131106
  Receipt Date: 20131106
  Transmission Date: 20140711
  Serious: Yes (Disabling)
  Sender: FDA-Public Use
  Company Number: US-MYLANLABS-2013S1024104

PATIENT
  Age: 14 Year
  Sex: Male

DRUGS (3)
  1. ITRACONAZOLE [Suspect]
     Indication: DRUG LEVEL BELOW THERAPEUTIC
     Dosage: 100MG DAILY
     Route: 048
  2. ITRACONAZOLE [Suspect]
     Indication: TINEA VERSICOLOUR
     Dosage: 100MG DAILY
     Route: 048
  3. CICLOSPORIN [Suspect]
     Indication: DERMATITIS ATOPIC
     Dosage: 5MG/KG/DAY
     Route: 065

REACTIONS (1)
  - Neurotoxicity [Recovering/Resolving]
